FAERS Safety Report 15257945 (Version 2)
Quarter: 2018Q3

REPORT INFORMATION
  Report Type: Report from Study
  Country: None (occurrence: GB)
  Receive Date: 20180808
  Receipt Date: 20180904
  Transmission Date: 20181010
  Serious: Yes (Hospitalization)
  Sender: FDA-Public Use
  Company Number: GB-ABBVIE-18S-167-2441339-00

PATIENT
  Age: 78 Year
  Sex: Male

DRUGS (1)
  1. DUODOPA [Suspect]
     Active Substance: CARBIDOPA\LEVODOPA
     Indication: PARKINSON^S DISEASE
     Dosage: 1 CASSETTE DAILY
     Route: 050

REACTIONS (9)
  - Device connection issue [Recovered/Resolved]
  - Parkinson^s disease [Unknown]
  - Aggression [Not Recovered/Not Resolved]
  - Disorientation [Not Recovered/Not Resolved]
  - Device leakage [Recovered/Resolved]
  - Device issue [Unknown]
  - Underdose [Unknown]
  - Device occlusion [Unknown]
  - Accident [Unknown]

NARRATIVE: CASE EVENT DATE: 201807
